FAERS Safety Report 12192468 (Version 1)
Quarter: 2016Q1

REPORT INFORMATION
  Report Type: Spontaneous
  Country: US (occurrence: US)
  Receive Date: 20160318
  Receipt Date: 20160318
  Transmission Date: 20160526
  Serious: No
  Sender: FDA-Public Use
  Company Number: US-OSMOTICA_PHARMACEUTICAL_CORP-POI0573201500056

PATIENT
  Age: 72 Year
  Sex: Male
  Weight: 68.1 kg

DRUGS (4)
  1. APIDRA [Concomitant]
     Active Substance: INSULIN GLULISINE
     Dosage: SLIDING SCALE
  2. BABY ASPIRIN [Concomitant]
     Active Substance: ASPIRIN
  3. OXYBUTYNIN CHLORIDE EXTENDED RELEASE [Suspect]
     Active Substance: OXYBUTYNIN CHLORIDE
     Indication: POLLAKIURIA
     Dates: start: 20150819, end: 20150824
  4. LANTUS [Concomitant]
     Active Substance: INSULIN GLARGINE
     Dosage: Q 6 PM

REACTIONS (3)
  - Dizziness [Recovered/Resolved]
  - Dyspnoea [Recovered/Resolved]
  - Cough [Not Recovered/Not Resolved]

NARRATIVE: CASE EVENT DATE: 20150823
